FAERS Safety Report 17186166 (Version 1)
Quarter: 2019Q4

REPORT INFORMATION
  Report Type: Report from Study
  Country: US (occurrence: US)
  Receive Date: 20191220
  Receipt Date: 20191220
  Transmission Date: 20200122
  Serious: Yes (Death)
  Sender: FDA-Public Use
  Company Number: US-ASTRAZENECA-2019SF84626

PATIENT
  Age: 74 Year
  Sex: Female

DRUGS (8)
  1. BUPROPION HCL [Concomitant]
     Active Substance: BUPROPION HYDROCHLORIDE
  2. TAGRISSO [Suspect]
     Active Substance: OSIMERTINIB
     Indication: METASTASES TO BONE MARROW
     Route: 048
     Dates: start: 20180522
  3. RANITIDINE HCL [Concomitant]
     Active Substance: RANITIDINE HYDROCHLORIDE
  4. ECOTRIN REGULAR STRENGTH [Concomitant]
     Active Substance: ASPIRIN
  5. DEXILANT [Concomitant]
     Active Substance: DEXLANSOPRAZOLE
  6. TYLENOL [Concomitant]
     Active Substance: ACETAMINOPHEN
  7. LEVOTHYROXINE SODIUM. [Concomitant]
     Active Substance: LEVOTHYROXINE SODIUM
  8. VITAMIN D-1000 [Concomitant]

REACTIONS (1)
  - Death [Fatal]

NARRATIVE: CASE EVENT DATE: 20191209
